FAERS Safety Report 9795560 (Version 2)
Quarter: 2014Q1

REPORT INFORMATION
  Report Type: Spontaneous
  Country: CN (occurrence: CN)
  Receive Date: 20140103
  Receipt Date: 20140131
  Transmission Date: 20141002
  Serious: Yes (Death, Other)
  Sender: FDA-Public Use
  Company Number: CN-JNJFOC-20131215018

PATIENT
  Sex: 0

DRUGS (5)
  1. DOXORUBICIN [Suspect]
     Indication: LYMPHOMA
     Route: 042
  2. CYCLOPHOSPHAMIDE [Suspect]
     Indication: LYMPHOMA
     Route: 065
  3. VINCRISTINE [Suspect]
     Indication: LYMPHOMA
     Route: 065
  4. PREDNISONE [Suspect]
     Indication: LYMPHOMA
     Route: 065
  5. RITUXIMAB [Suspect]
     Indication: LYMPHOMA
     Route: 065

REACTIONS (2)
  - Infection [Fatal]
  - Bone marrow failure [Unknown]
